FAERS Safety Report 15878273 (Version 5)
Quarter: 2019Q3

REPORT INFORMATION
  Report Type: Spontaneous
  Country: US (occurrence: US)
  Receive Date: 20190128
  Receipt Date: 20190923
  Transmission Date: 20191004
  Serious: Yes (Other)
  Sender: FDA-Public Use
  Company Number: US-PFIZER INC-2019031300

PATIENT
  Age: 52 Year
  Sex: Female
  Weight: 56 kg

DRUGS (4)
  1. LYRICA [Suspect]
     Active Substance: PREGABALIN
     Indication: BURNING SENSATION
     Dosage: 150 MG, 2X/DAY
  2. LYRICA [Suspect]
     Active Substance: PREGABALIN
     Indication: NEURALGIA
  3. LYRICA [Suspect]
     Active Substance: PREGABALIN
     Indication: FIBROMYALGIA
     Dosage: 150 MG, 2X/DAY (ONE IN THE MORNING AND ONE AT NIGHT)
     Dates: end: 2015
  4. OLANZAPINE. [Suspect]
     Active Substance: OLANZAPINE
     Indication: DEPRESSION
     Dosage: 10 MG, 1X/DAY

REACTIONS (4)
  - Hyperhidrosis [Unknown]
  - Fear [Unknown]
  - Peripheral swelling [Recovered/Resolved]
  - Drug dependence [Unknown]

NARRATIVE: CASE EVENT DATE: 2015
